FAERS Safety Report 4855845-0 (Version None)
Quarter: 2005Q4

REPORT INFORMATION
  Report Type: 
  Country: None (occurrence: None)
  Receive Date: 20051215
  Receipt Date: 20051215
  Transmission Date: 20060501
  Serious: No
  Sender: FDA-Public Use
  Company Number: None

PATIENT
  Age: 78 Year
  Sex: Male
  Weight: 80.7403 kg

DRUGS (11)
  1. VYTORIN [Suspect]
     Indication: HYPERLIPIDAEMIA
     Dosage: 5 MG / 40 MG DAILY PO
     Route: 048
  2. M.V.I. [Concomitant]
  3. METOPROLOL [Concomitant]
  4. GLYBURIDE [Concomitant]
  5. ASPIRIN [Concomitant]
  6. DOCUSATE [Concomitant]
  7. METFORMIN [Concomitant]
  8. TERAZOSIN [Concomitant]
  9. LISINOPRIL [Concomitant]
  10. PENTOXYFILLINE [Concomitant]
  11. ROSIGLITAZONE [Concomitant]

REACTIONS (1)
  - DIZZINESS [None]
